FAERS Safety Report 7409401-0 (Version None)
Quarter: 2011Q1

REPORT INFORMATION
  Report Type: 
  Country: None (occurrence: None)
  Receive Date: 20110301
  Receipt Date: 20100907
  Transmission Date: 20110831
  Serious: Yes (Death)
  Sender: FDA-Public Use
  Company Number: RB-15073-2010

PATIENT
  Sex: Male

DRUGS (4)
  1. SUBOXONE [Suspect]
     Indication: DRUG DEPENDENCE
     Dosage: (8 MG BID SUBLINGUAL), (12 MG QD SUBLINGUAL), (8 MG BID SUBLINGUAL)
     Route: 060
     Dates: start: 20100706, end: 20100801
  2. SUBOXONE [Suspect]
     Indication: DRUG DEPENDENCE
     Dosage: (8 MG BID SUBLINGUAL), (12 MG QD SUBLINGUAL), (8 MG BID SUBLINGUAL)
     Route: 060
     Dates: end: 20100324
  3. SUBOXONE [Suspect]
     Indication: DRUG DEPENDENCE
     Dosage: (8 MG BID SUBLINGUAL), (12 MG QD SUBLINGUAL), (8 MG BID SUBLINGUAL)
     Route: 060
     Dates: start: 20100325, end: 20100705
  4. XANAX [Suspect]
     Indication: ANXIETY
     Dosage: (2 MG TID)

REACTIONS (1)
  - OVERDOSE [None]
